FAERS Safety Report 5347279-X (Version None)
Quarter: 2007Q2

REPORT INFORMATION
  Report Type: 
  Country: None (occurrence: None)
  Receive Date: 20070606
  Receipt Date: 20070530
  Transmission Date: 20071010
  Serious: Yes (Hospitalization)
  Sender: FDA-Public Use
  Company Number: PHEH2007US03868

PATIENT
  Age: 57 Year
  Sex: Female

DRUGS (3)
  1. ZELNORM [Suspect]
     Indication: IRRITABLE BOWEL SYNDROME
     Dosage: 6 MG, QD
     Route: 048
     Dates: start: 20060101, end: 20070402
  2. MAXZIDE [Concomitant]
  3. TOPROL-XL [Concomitant]
     Dates: start: 20070301

REACTIONS (6)
  - BLOOD TEST ABNORMAL [None]
  - CHEST DISCOMFORT [None]
  - COLD SWEAT [None]
  - FATIGUE [None]
  - HEART RATE INCREASED [None]
  - SOMNOLENCE [None]
